FAERS Safety Report 5971604-X (Version None)
Quarter: 2008Q4

REPORT INFORMATION
  Report Type: 
  Country: None (occurrence: None)
  Receive Date: 20081201
  Receipt Date: 20081126
  Transmission Date: 20090506
  Serious: No
  Sender: FDA-Public Use
  Company Number: US-JNJFOC-20081106319

PATIENT
  Sex: Male
  Weight: 117.94 kg

DRUGS (1)
  1. DURAGESIC-100 [Suspect]
     Indication: PAIN
     Route: 062
     Dates: start: 20080801

REACTIONS (1)
  - DRUG ADMINISTERED AT INAPPROPRIATE SITE [None]
